FAERS Safety Report 17460001 (Version 3)
Quarter: 2020Q1

REPORT INFORMATION
  Report Type: Report from Study
  Country: US (occurrence: US)
  Receive Date: 20200226
  Receipt Date: 20200327
  Transmission Date: 20200409
  Serious: Yes (Other)
  Sender: FDA-Public Use
  Company Number: US-ROCHE-2551240

PATIENT
  Sex: Male

DRUGS (7)
  1. ESBRIET [Suspect]
     Active Substance: PIRFENIDONE
     Dosage: 2 TABLETS BY MOUTH 3 TIMES A DAY ONGOING: NO
     Route: 048
  2. ESBRIET [Suspect]
     Active Substance: PIRFENIDONE
     Dosage: TAKE 1 TABLET BY MOUTH 3 TIMES A DAY
     Route: 048
  3. ESBRIET [Suspect]
     Active Substance: PIRFENIDONE
     Dosage: 1 TABLET BY MOUTH 3 TIMES A DAY ONGOING: NO
     Route: 048
  4. ESBRIET [Suspect]
     Active Substance: PIRFENIDONE
     Dosage: 3 TABLETS BY MOUTH 3 TIMES A DAY ONGOING: NO THEN
     Route: 048
  5. ESBRIET [Suspect]
     Active Substance: PIRFENIDONE
     Dosage: 1 TABLET BY MOUTH 3 TIMES A DAY ONGOING: NO
     Route: 048
  6. ESBRIET [Suspect]
     Active Substance: PIRFENIDONE
     Indication: IDIOPATHIC PULMONARY FIBROSIS
     Dosage: TAKE 1 TABLET BY MOUTH 3 TIMES A DAYTAKE 1 TABLET BY MOUTH 3 TIMES A DAY 267MG -?TAKE 1 TABLET BY MO
     Route: 048
  7. ESBRIET [Suspect]
     Active Substance: PIRFENIDONE
     Dosage: TAKE 1 TABLET BY MOUTH 3 TIMES A DAY WITH MEALS.
     Route: 048

REACTIONS (3)
  - Hip fracture [Unknown]
  - Fall [Unknown]
  - Liver function test increased [Unknown]
